FAERS Safety Report 17097120 (Version 4)
Quarter: 2020Q2

REPORT INFORMATION
  Report Type: Report from Study
  Country: US (occurrence: US)
  Receive Date: 20191202
  Receipt Date: 20200512
  Transmission Date: 20200713
  Serious: No
  Sender: FDA-Public Use
  Company Number: NVSC2019US054825

PATIENT
  Sex: Male

DRUGS (1)
  1. COSENTYX [Suspect]
     Active Substance: SECUKINUMAB
     Indication: PSORIASIS
     Dosage: UNK, QW FOR 5 WEEKS THEN Q4W
     Route: 058

REACTIONS (9)
  - Injection site paraesthesia [Recovered/Resolved]
  - Dermatitis [Unknown]
  - Injection site pruritus [Recovered/Resolved]
  - Pruritus [Unknown]
  - Product administration error [Unknown]
  - Drug ineffective [Unknown]
  - Hypoacusis [Unknown]
  - Abdominal pain upper [Recovered/Resolved]
  - Ear infection [Unknown]
